FAERS Safety Report 23429064 (Version 6)
Quarter: 2024Q1

REPORT INFORMATION
  Report Type: Spontaneous
  Country: US (occurrence: US)
  Receive Date: 20240122
  Receipt Date: 20240302
  Transmission Date: 20240410
  Serious: Yes (Other)
  Sender: FDA-Public Use
  Company Number: US-ORGANON-O2401USA001802

PATIENT
  Age: 37 Year
  Sex: Female
  Weight: 60.3 kg

DRUGS (1)
  1. NEXPLANON [Suspect]
     Active Substance: ETONOGESTREL
     Indication: Contraception
     Dosage: 1 IMPLANT, RIGHT UPPER ARM
     Route: 059
     Dates: start: 20220914

REACTIONS (5)
  - Pregnancy with implant contraceptive [Recovered/Resolved]
  - Abortion induced [Unknown]
  - Unintended pregnancy [Recovered/Resolved]
  - Complication associated with device [Not Recovered/Not Resolved]
  - Product dose omission issue [Unknown]

NARRATIVE: CASE EVENT DATE: 20230401
